FAERS Safety Report 9129434 (Version 1)
Quarter: 2013Q1

REPORT INFORMATION
  Report Type: Spontaneous
  Country: US (occurrence: US)
  Receive Date: 20130228
  Receipt Date: 20130228
  Transmission Date: 20140127
  Serious: Yes (Hospitalization)
  Sender: FDA-Public Use
  Company Number: US-GLAXOSMITHKLINE-A0999501A

PATIENT
  Age: 70 Year
  Sex: Female

DRUGS (2)
  1. ADVAIR [Suspect]
     Indication: PRODUCT USED FOR UNKNOWN INDICATION
     Route: 055
  2. CONCURRENT MEDICATIONS [Concomitant]

REACTIONS (6)
  - Facial bones fracture [Unknown]
  - Facial bones fracture [Unknown]
  - Contusion [Unknown]
  - Fall [Unknown]
  - Joint injury [Unknown]
  - Surgery [Unknown]
